FAERS Safety Report 22190918 (Version 2)
Quarter: 2023Q2

REPORT INFORMATION
  Report Type: Spontaneous
  Country: IT (occurrence: IT)
  Receive Date: 20230410
  Receipt Date: 20230414
  Transmission Date: 20230721
  Serious: Yes (Hospitalization, Other)
  Sender: FDA-Public Use
  Company Number: IT-MINISAL02-917017

PATIENT
  Age: 20 Year
  Sex: Male

DRUGS (5)
  1. MIRTAZAPINE [Suspect]
     Active Substance: MIRTAZAPINE
     Indication: Intentional self-injury
     Dosage: UNK (FREQUENCY OF ADMINISTRATION)
     Route: 048
     Dates: start: 20230318, end: 20230318
  2. QUETIAPINE [Suspect]
     Active Substance: QUETIAPINE
     Indication: Intentional self-injury
     Dosage: UNK
     Route: 048
     Dates: start: 20230318, end: 20230318
  3. QUETIAPINE [Suspect]
     Active Substance: QUETIAPINE
     Indication: Drug abuse
  4. CLOTHIAPINE [Suspect]
     Active Substance: CLOTHIAPINE
     Indication: Intentional self-injury
     Dosage: UNK
     Route: 048
     Dates: start: 20230318, end: 20230318
  5. FLURAZEPAM [Suspect]
     Active Substance: FLURAZEPAM HYDROCHLORIDE
     Indication: Intentional self-injury
     Dosage: UNK
     Route: 048
     Dates: start: 20230318, end: 20230318

REACTIONS (3)
  - Sopor [Recovered/Resolved]
  - Drug abuse [Recovered/Resolved]
  - Intentional self-injury [Recovered/Resolved]

NARRATIVE: CASE EVENT DATE: 20230318
